FAERS Safety Report 11323446 (Version 1)
Quarter: 2015Q3

REPORT INFORMATION
  Report Type: Spontaneous
  Country: US (occurrence: US)
  Receive Date: 20150730
  Receipt Date: 20150730
  Transmission Date: 20151125
  Serious: No
  Sender: FDA-Public Use
  Company Number: CHPA2015US008975

PATIENT
  Age: 77 Year
  Sex: Female

DRUGS (1)
  1. VOLTAREN [Suspect]
     Active Substance: DICLOFENAC SODIUM
     Indication: RESTLESS LEGS SYNDROME
     Dosage: 2 G PER LEG, ONCE TO BID A DAY
     Route: 061

REACTIONS (4)
  - Inappropriate schedule of drug administration [Unknown]
  - Psoriasis [Recovering/Resolving]
  - Product use issue [Unknown]
  - Drug administered at inappropriate site [Unknown]

NARRATIVE: CASE EVENT DATE: 201505
